FAERS Safety Report 23694621 (Version 4)
Quarter: 2024Q2

REPORT INFORMATION
  Report Type: Spontaneous
  Country: US (occurrence: US)
  Receive Date: 20240402
  Receipt Date: 20240621
  Transmission Date: 20240716
  Serious: Yes (Hospitalization, Other)
  Sender: FDA-Public Use
  Company Number: US-ABBVIE-5700217

PATIENT
  Age: 36 Year
  Sex: Female

DRUGS (1)
  1. BOTOX [Suspect]
     Active Substance: ONABOTULINUMTOXINA
     Indication: Migraine
     Dosage: TIME INTERVAL: AS NECESSARY
     Route: 065

REACTIONS (13)
  - Hemiparesis [Recovering/Resolving]
  - Posture abnormal [Recovering/Resolving]
  - Dizziness [Recovering/Resolving]
  - Vision blurred [Recovering/Resolving]
  - Paralysis [Recovering/Resolving]
  - Increased bronchial secretion [Recovering/Resolving]
  - Musculoskeletal stiffness [Not Recovered/Not Resolved]
  - Dysphagia [Recovering/Resolving]
  - Choking [Recovering/Resolving]
  - Eyelid ptosis [Recovering/Resolving]
  - Intraocular pressure increased [Not Recovered/Not Resolved]
  - Product use in unapproved indication [Unknown]
  - Speech disorder [Recovering/Resolving]
